FAERS Safety Report 18817230 (Version 1)
Quarter: 2021Q1

REPORT INFORMATION
  Report Type: Report from Study
  Country: US (occurrence: US)
  Receive Date: 20210201
  Receipt Date: 20210201
  Transmission Date: 20210419
  Serious: Yes (Hospitalization)
  Sender: FDA-Public Use
  Company Number: US-KARYOPHARM-2020KPT001550

PATIENT
  Sex: Female

DRUGS (40)
  1. PANTOPRAZOLE [Concomitant]
     Active Substance: PANTOPRAZOLE
     Indication: GASTROOESOPHAGEAL REFLUX DISEASE
     Dosage: 40 MG, BID
     Route: 048
     Dates: start: 2013
  2. ONDANSETRON [Concomitant]
     Active Substance: ONDANSETRON
     Indication: NAUSEA
     Dosage: 8 MG, PRN
     Route: 048
     Dates: start: 2018
  3. ONDANSETRON [Concomitant]
     Active Substance: ONDANSETRON
     Dosage: 8 MG, SINGLE
     Route: 042
     Dates: start: 20201130, end: 20201130
  4. KETOCONAZOLE. [Concomitant]
     Active Substance: KETOCONAZOLE
     Indication: SEBORRHOEIC DERMATITIS
     Dosage: UNK, WEEKLY
     Route: 061
     Dates: start: 2010
  5. OLMESARTAN [Concomitant]
     Active Substance: OLMESARTAN
     Indication: HYPERTENSION
     Dosage: 40 MG, QD
     Route: 048
     Dates: start: 201906
  6. TURMERIC + [Concomitant]
     Indication: SUPPLEMENTATION THERAPY
     Dosage: 500 UG, QD
     Route: 048
     Dates: start: 20200901
  7. FENTANYL. [Concomitant]
     Active Substance: FENTANYL
     Indication: BIOPSY
     Dosage: 50 UG, PRN
     Route: 042
     Dates: start: 20201110, end: 20201110
  8. OLANZAPINE. [Concomitant]
     Active Substance: OLANZAPINE
     Indication: NAUSEA
     Dosage: 2.5 MG, QD
     Route: 048
     Dates: start: 20201111, end: 20201116
  9. AMLODIPINE [Concomitant]
     Active Substance: AMLODIPINE BESYLATE
     Indication: HYPERTENSION
     Dosage: 5 MG, QD
     Route: 048
     Dates: start: 201912
  10. BUTALBITAL, ACETAMINOPHEN, AND CAFFEINE [Concomitant]
     Active Substance: ACETAMINOPHEN\BUTALBITAL\CAFFEINE
     Indication: MIGRAINE
     Dosage: 1 DOSAGE FORM, PRN
     Route: 048
     Dates: start: 201912
  11. LIDOCAINE. [Concomitant]
     Active Substance: LIDOCAINE
     Indication: BIOPSY
     Dosage: 10 ML, SINGLE
     Route: 042
     Dates: start: 20201110, end: 20201110
  12. LORAZEPAM. [Concomitant]
     Active Substance: LORAZEPAM
     Indication: BIOPSY
     Dosage: 1 MG, SINGLE
     Route: 042
     Dates: start: 20201130, end: 20201130
  13. DEXAMETHASONE. [Concomitant]
     Active Substance: DEXAMETHASONE
     Indication: PROPHYLAXIS
     Dosage: 10 MG
     Route: 042
     Dates: start: 20201111
  14. DEXAMETHASONE. [Concomitant]
     Active Substance: DEXAMETHASONE
     Dosage: 4 MG
     Route: 048
     Dates: start: 20201123
  15. ERIBULIN [Suspect]
     Active Substance: ERIBULIN
     Indication: PRODUCT USED FOR UNKNOWN INDICATION
     Dosage: 1 MG/M2
     Route: 042
     Dates: start: 20201201, end: 20201208
  16. OXYCODONE [Concomitant]
     Active Substance: OXYCODONE
     Indication: TUMOUR PAIN
     Dosage: 18 MG, BID
     Route: 048
     Dates: start: 201912
  17. ONDANSETRON [Concomitant]
     Active Substance: ONDANSETRON
     Indication: BIOPSY
     Dosage: 8 MG, SINGLE
     Route: 042
     Dates: start: 20201110, end: 20201110
  18. ONDANSETRON [Concomitant]
     Active Substance: ONDANSETRON
     Dosage: 8 MG
     Dates: start: 20201111
  19. GABAPENTIN. [Concomitant]
     Active Substance: GABAPENTIN
     Indication: NEUROPATHY PERIPHERAL
     Dosage: 600 MG, QID
     Route: 048
     Dates: start: 2017
  20. FENTANYL. [Concomitant]
     Active Substance: FENTANYL
     Dosage: 25 UG, PRN
     Route: 042
     Dates: start: 20201130, end: 20201130
  21. FLUTICASONE. [Concomitant]
     Active Substance: FLUTICASONE
     Indication: SEASONAL ALLERGY
     Dosage: 50 UG, PRN
     Route: 045
     Dates: start: 2010
  22. DULAGLUTIDE. [Concomitant]
     Active Substance: DULAGLUTIDE
     Indication: TYPE 2 DIABETES MELLITUS
     Dosage: 1.5 MG, PRN
     Route: 058
     Dates: start: 201708
  23. ISOSORBIDE MONONITRATE. [Concomitant]
     Active Substance: ISOSORBIDE MONONITRATE
     Indication: CHEST PAIN
     Dosage: 120 MG, QD
     Route: 048
     Dates: start: 2017
  24. ESZOPICLONE. [Concomitant]
     Active Substance: ESZOPICLONE
     Indication: INSOMNIA
     Dosage: 2 MG, PRN
     Route: 048
     Dates: start: 2016
  25. VENTOLIN [Concomitant]
     Active Substance: ALBUTEROL SULFATE
     Indication: ASTHMA
     Dosage: 1 DOSAGE FORM, PRN
     Route: 048
     Dates: start: 2015
  26. CHOLECALCIFEROL [Concomitant]
     Active Substance: CHOLECALCIFEROL
     Indication: SUPPLEMENTATION THERAPY
     Dosage: 25 UG, QD
     Route: 048
     Dates: start: 20201106
  27. MIDAZOLAM. [Concomitant]
     Active Substance: MIDAZOLAM
     Indication: BIOPSY
     Dosage: 2 MG, SINGLE
     Route: 042
     Dates: start: 20201110, end: 20201110
  28. LIDOCAINE. [Concomitant]
     Active Substance: LIDOCAINE
     Dosage: 10 ML, SINGLE
     Route: 042
     Dates: start: 20201130, end: 20201130
  29. TRAVOPROST. [Concomitant]
     Active Substance: TRAVOPROST
     Indication: GLAUCOMA
     Dosage: 1 DOSAGE FORM, QD
     Route: 047
     Dates: start: 2015
  30. EMPAGLIFLOZIN [Concomitant]
     Active Substance: EMPAGLIFLOZIN
     Indication: TYPE 2 DIABETES MELLITUS
     Dosage: 25 MG, QD
     Route: 048
     Dates: start: 201708
  31. NEBIVOLOL. [Concomitant]
     Active Substance: NEBIVOLOL
     Indication: HYPERTENSION
     Dosage: 10 MG, QD
     Route: 048
     Dates: start: 2015
  32. DULOXETINE. [Concomitant]
     Active Substance: DULOXETINE
     Indication: DEPRESSION
  33. OXYCODONE [Concomitant]
     Active Substance: OXYCODONE
     Dosage: 10 MG, PRN
     Route: 048
     Dates: start: 201912
  34. TACROLIMUS. [Concomitant]
     Active Substance: TACROLIMUS
     Indication: SEBORRHOEIC DERMATITIS
     Dosage: UNK, QD
     Route: 048
     Dates: start: 201906
  35. OLANZAPINE. [Concomitant]
     Active Substance: OLANZAPINE
     Dosage: 5 MG, BID
     Route: 048
     Dates: start: 20201116
  36. SELINEXOR [Suspect]
     Active Substance: SELINEXOR
     Indication: PRODUCT USED FOR UNKNOWN INDICATION
     Dosage: 80 MG, WEEKLY
     Route: 048
     Dates: start: 20201201, end: 20201208
  37. MELOXICAM. [Concomitant]
     Active Substance: MELOXICAM
     Indication: RHEUMATOID ARTHRITIS
     Dosage: 15 MG, QD
     Route: 048
     Dates: start: 2012
  38. MECLIZINE HCL [Concomitant]
     Active Substance: MECLIZINE HYDROCHLORIDE
     Indication: VERTIGO
     Dosage: 25 MG, PRN
     Dates: start: 201912
  39. LEVOCETIRIZINE [Concomitant]
     Active Substance: LEVOCETIRIZINE
     Indication: SEASONAL ALLERGY
     Dosage: 5 MG, QD
     Route: 048
     Dates: start: 2010
  40. DULOXETINE. [Concomitant]
     Active Substance: DULOXETINE
     Indication: ANXIETY
     Dosage: 60 MG, BID
     Route: 048
     Dates: start: 201912

REACTIONS (1)
  - Nausea [Recovered/Resolved]

NARRATIVE: CASE EVENT DATE: 20201209
